FAERS Safety Report 5808071-2 (Version None)
Quarter: 2008Q3

REPORT INFORMATION
  Report Type: 
  Country: None (occurrence: None)
  Receive Date: 20080711
  Receipt Date: 20080630
  Transmission Date: 20090109
  Serious: Yes (Other)
  Sender: FDA-Public Use
  Company Number: US-PFIZER INC-2008054885

PATIENT
  Sex: Female
  Weight: 60.8 kg

DRUGS (8)
  1. CHANTIX [Suspect]
     Indication: SMOKING CESSATION THERAPY
     Dates: start: 20080501, end: 20080620
  2. PRAVACHOL [Concomitant]
  3. MIDRIN [Concomitant]
  4. METFORMIN [Concomitant]
  5. TOPAMAX [Concomitant]
  6. VITAMIN TAB [Concomitant]
  7. FUROSEMIDE [Concomitant]
  8. ADVAIR DISKUS 100/50 [Concomitant]

REACTIONS (7)
  - AGGRESSION [None]
  - HYPERSOMNIA [None]
  - INJURY [None]
  - MOOD ALTERED [None]
  - SCREAMING [None]
  - STRESS [None]
  - UNEVALUABLE EVENT [None]
